FAERS Safety Report 5227959-7 (Version None)
Quarter: 2007Q1

REPORT INFORMATION
  Report Type: 
  Country: None (occurrence: None)
  Receive Date: 20061201
  Receipt Date: 20060703
  Transmission Date: 20070707
  Serious: Yes (Hospitalization)
  Sender: FDA-Public Use
  Company Number: 2006-144895-NL

PATIENT
  Age: 50 Year
  Sex: Female
  Weight: 47.6 kg

DRUGS (5)
  1. NUVARING [Suspect]
     Indication: HYPERPLASIA
     Dosage: VAGINAL
     Route: 067
     Dates: start: 20040101
  2. NUVARING [Suspect]
     Indication: MENORRHAGIA
     Dosage: VAGINAL
     Route: 067
     Dates: start: 20040101
  3. INDERAL [Concomitant]
  4. TOPAMAX [Concomitant]
  5. AMERGE [Concomitant]

REACTIONS (1)
  - DEEP VEIN THROMBOSIS [None]
